FAERS Safety Report 12963501 (Version 1)
Quarter: 2016Q4

REPORT INFORMATION
  Report Type: Spontaneous
  Country: GB (occurrence: GB)
  Receive Date: 20161122
  Receipt Date: 20161122
  Transmission Date: 20170207
  Serious: Yes (Hospitalization)
  Sender: FDA-Public Use
  Company Number: GB-ACCORD-045686

PATIENT
  Age: 54 Year
  Sex: Female

DRUGS (14)
  1. OMEPRAZOLE. [Concomitant]
     Active Substance: OMEPRAZOLE
  2. THIAMINE. [Concomitant]
     Active Substance: THIAMINE
  3. FOLIC ACID. [Concomitant]
     Active Substance: FOLIC ACID
  4. SIMVASTATIN. [Concomitant]
     Active Substance: SIMVASTATIN
  5. VENLAFAXINE/VENLAFAXINE HYDROCHLORIDE [Concomitant]
  6. AMITRIPTYLINE [Suspect]
     Active Substance: AMITRIPTYLINE
     Indication: PRODUCT USED FOR UNKNOWN INDICATION
     Dosage: MORNING AND NIGHT
     Route: 048
  7. ACETYLSALICYLIC ACID [Concomitant]
     Active Substance: ASPIRIN
  8. DIAZEPAM. [Suspect]
     Active Substance: DIAZEPAM
     Indication: PRODUCT USED FOR UNKNOWN INDICATION
     Dosage: 5 MG MORNING AND LUNCH AND 10 MG AT NIGHT.
     Route: 048
  9. MEZOLAR MATRIX [Suspect]
     Active Substance: FENTANYL
     Indication: PAIN
     Route: 062
  10. PREGABALIN. [Concomitant]
     Active Substance: PREGABALIN
     Dosage: NEXT 2 DOSES WITHHELD.
  11. NITRAZEPAM [Suspect]
     Active Substance: NITRAZEPAM
     Indication: PRODUCT USED FOR UNKNOWN INDICATION
     Dosage: AT NIGHT.
     Route: 048
  12. BISOPROLOL [Concomitant]
     Active Substance: BISOPROLOL
  13. GLYCERYL TRINITRATE [Concomitant]
     Active Substance: NITROGLYCERIN
  14. FUROSEMIDE. [Concomitant]
     Active Substance: FUROSEMIDE

REACTIONS (2)
  - Loss of consciousness [Recovering/Resolving]
  - Chronic obstructive pulmonary disease [Recovering/Resolving]
